FAERS Safety Report 13034858 (Version 1)
Quarter: 2016Q4

REPORT INFORMATION
  Report Type: Report from Study
  Country: NL (occurrence: NL)
  Receive Date: 20161216
  Receipt Date: 20161216
  Transmission Date: 20170207
  Serious: Yes (Hospitalization)
  Sender: FDA-Public Use
  Company Number: NL-AMGEN-NLDSL2016175156

PATIENT
  Age: 87 Year
  Sex: Female

DRUGS (1)
  1. ARANESP [Suspect]
     Active Substance: DARBEPOETIN ALFA
     Indication: NEPHROGENIC ANAEMIA
     Dosage: 40 MUG, (100 MCG/ML, 0.4 ML) Q4WK
     Route: 058

REACTIONS (2)
  - Hospitalisation [Recovered/Resolved]
  - Living in residential institution [Unknown]

NARRATIVE: CASE EVENT DATE: 20161116
